FAERS Safety Report 5847859-9 (Version None)
Quarter: 2008Q3

REPORT INFORMATION
  Report Type: 
  Country: None (occurrence: None)
  Receive Date: 20080818
  Receipt Date: 20080813
  Transmission Date: 20090109
  Serious: Yes (Hospitalization)
  Sender: FDA-Public Use
  Company Number: GB-BAYER-200811895BNE

PATIENT
  Age: 65 Year
  Sex: Male
  Weight: 82 kg

DRUGS (3)
  1. SORAFENIB [Suspect]
     Indication: DRUG USE FOR UNKNOWN INDICATION
     Dates: start: 20070701, end: 20080131
  2. SORAFENIB [Suspect]
     Dates: start: 20080409, end: 20080608
  3. SORAFENIB [Suspect]
     Dosage: TOTAL DAILY DOSE: 200 MG
     Dates: start: 20080713

REACTIONS (4)
  - DYSPNOEA [None]
  - FATIGUE [None]
  - PALPITATIONS [None]
  - SUPRAVENTRICULAR TACHYCARDIA [None]
